FAERS Safety Report 8543233-5 (Version None)
Quarter: 2012Q3

REPORT INFORMATION
  Report Type: 
  Country: None (occurrence: None)
  Receive Date: 20120727
  Receipt Date: 20120716
  Transmission Date: 20120928
  Serious: Yes (Hospitalization)
  Sender: FDA-Public Use
  Company Number: US-BAYER-2011-122312

PATIENT
  Age: 22 Year
  Sex: Female
  Weight: 93 kg

DRUGS (17)
  1. AZITHROMYCIN [Concomitant]
  2. ADDERALL 5 [Concomitant]
     Indication: ATTENTION DEFICIT/HYPERACTIVITY DISORDER
     Dosage: 30 MG
     Dates: start: 20090501, end: 20110201
  3. LEVAQUIN [Concomitant]
  4. ZOSYN [Concomitant]
  5. AUGMENTIN '500' [Concomitant]
  6. AMOXICILLIN [Concomitant]
     Dosage: 500 MG, BID
     Route: 048
  7. VANCOMYCIN [Concomitant]
  8. TRAMADOL HYDROCHLORIDE [Concomitant]
     Dosage: 50 MG, Q4HR
  9. ATIVAN [Concomitant]
     Dosage: 0.5 MG, BID
     Route: 048
  10. NASACORT [Concomitant]
     Route: 045
  11. FEXOFENADINE [Concomitant]
     Route: 048
  12. YAZ [Suspect]
     Indication: CONTRACEPTION
     Dosage: UNK
     Dates: start: 20070101, end: 20070301
  13. YAZ [Suspect]
     Indication: OVARIAN CYST
     Dosage: UNK
     Dates: start: 20090831, end: 20091203
  14. TRAMADOL HYDROCHLORIDE [Concomitant]
     Indication: PAIN
     Dosage: 50 MG
  15. OMNICEF [Concomitant]
     Dosage: 300 MG, BID
     Route: 048
  16. GUAIFENESIN/CODEINE [Concomitant]
     Dosage: 100-10 MG/5 ML
  17. ALEVE [Concomitant]
     Dosage: UNK UNK, PRN
     Route: 048

REACTIONS (3)
  - PULMONARY EMBOLISM [None]
  - INJURY [None]
  - LUNG CONSOLIDATION [None]
